FAERS Safety Report 26176893 (Version 1)
Quarter: 2025Q4

REPORT INFORMATION
  Report Type: Report from Study
  Country: US (occurrence: US)
  Receive Date: 20251218
  Receipt Date: 20251218
  Transmission Date: 20260117
  Serious: No
  Sender: BIOGEN
  Company Number: US-BIOGEN-2095191

PATIENT
  Age: 32 Year
  Sex: Female

DRUGS (1)
  1. ZURZUVAE [Suspect]
     Active Substance: ZURANOLONE
     Indication: Perinatal depression

REACTIONS (6)
  - Brain fog [Unknown]
  - Disturbance in attention [Unknown]
  - Somnolence [Unknown]
  - Fatigue [Unknown]
  - Tremor [Unknown]
  - Cognitive disorder [Unknown]
